FAERS Safety Report 6242438-6 (Version None)
Quarter: 2009Q2

REPORT INFORMATION
  Report Type: 
  Country: None (occurrence: None)
  Receive Date: 20090622
  Receipt Date: 20090622
  Transmission Date: 20091009
  Serious: No
  Sender: FDA-Public Use
  Company Number: None

PATIENT
  Age: 37 Year
  Sex: Female
  Weight: 53.5244 kg

DRUGS (1)
  1. MIDODRINE HCL  5MG [Suspect]
     Indication: ORTHOSTATIC INTOLERANCE
     Dosage: 10 MG 3 X'S A DAY UNK
     Dates: start: 20090406, end: 20090618

REACTIONS (7)
  - ERYTHEMA [None]
  - EYE PAIN [None]
  - FLUSHING [None]
  - OCULAR HYPERAEMIA [None]
  - PAIN [None]
  - ROSACEA [None]
  - SKIN DISCOLOURATION [None]
